FAERS Safety Report 19721726 (Version 1)
Quarter: 2021Q3

REPORT INFORMATION
  Report Type: Spontaneous
  Country: NP (occurrence: NP)
  Receive Date: 20210819
  Receipt Date: 20210819
  Transmission Date: 20211014
  Serious: Yes (Life-Threatening, Hospitalization)
  Sender: FDA-Public Use
  Company Number: NP-AZURITY PHARMACEUTICALS, INC.-2021AZY00082

PATIENT
  Age: 9 Year
  Sex: Female

DRUGS (1)
  1. VANCOMYCIN HYDROCHLORIDE. [Suspect]
     Active Substance: VANCOMYCIN HYDROCHLORIDE
     Indication: PROPHYLAXIS
     Dosage: 500 MG ACCIDENTLY INFUSED IN ABOUT 5 MINUTES RATHER THAN 1 HOUR
     Route: 042

REACTIONS (4)
  - Red man syndrome [Recovered/Resolved]
  - Depressed level of consciousness [Recovered/Resolved]
  - Cardio-respiratory arrest [Recovered/Resolved]
  - Incorrect drug administration rate [Recovered/Resolved]
